FAERS Safety Report 9007475 (Version 2)
Quarter: 2013Q1

REPORT INFORMATION
  Report Type: Spontaneous
  Country: US (occurrence: US)
  Receive Date: 20130111
  Receipt Date: 20130125
  Transmission Date: 20140127
  Serious: Yes (Other)
  Sender: FDA-Public Use
  Company Number: US-009507513-0909USA02972

PATIENT
  Age: 4 Year
  Sex: Male
  Weight: 19.51 kg

DRUGS (2)
  1. SINGULAIR [Suspect]
     Indication: MULTIPLE ALLERGIES
     Dosage: 4 MG, QD
     Route: 048
  2. SINGULAIR [Suspect]
     Indication: ASTHMA

REACTIONS (4)
  - Abnormal behaviour [Unknown]
  - Anger [Unknown]
  - Anxiety [Unknown]
  - Fatigue [Unknown]
